FAERS Safety Report 17572238 (Version 10)
Quarter: 2023Q2

REPORT INFORMATION
  Report Type: Spontaneous
  Country: PL (occurrence: PL)
  Receive Date: 20200323
  Receipt Date: 20230612
  Transmission Date: 20230721
  Serious: Yes (Death, Disabling, Other)
  Sender: FDA-Public Use
  Company Number: PL-002147023-NVSC2020PL071878

PATIENT

DRUGS (37)
  1. DICLOFENAC SODIUM [Suspect]
     Active Substance: DICLOFENAC SODIUM
     Indication: Pain
     Dosage: 100 MG, BID
     Route: 065
  2. DICLOFENAC SODIUM [Suspect]
     Active Substance: DICLOFENAC SODIUM
     Dosage: UNK
     Dates: start: 201401
  3. FENTANYL [Suspect]
     Active Substance: FENTANYL
     Indication: Cancer pain
     Dosage: 50 ?G (Q72H)
     Route: 062
     Dates: start: 201603, end: 2016
  4. FENTANYL [Suspect]
     Active Substance: FENTANYL
     Indication: Pain
     Dosage: 50 ?G (QH)
     Route: 062
     Dates: start: 2016, end: 2016
  5. FENTANYL [Suspect]
     Active Substance: FENTANYL
     Dosage: 200 UG, 3-4 TIMES A DAY
     Route: 048
  6. FENTANYL [Suspect]
     Active Substance: FENTANYL
     Dosage: 200 UG, QH
     Route: 062
  7. FENTANYL [Suspect]
     Active Substance: FENTANYL
     Dosage: 400 UG, 3 TO 4 TIMES A DAY
     Route: 048
  8. FENTANYL [Suspect]
     Active Substance: FENTANYL
     Dosage: UNK (50 MG/H, EVERY 3 DAYS)
     Route: 062
  9. FENTANYL [Suspect]
     Active Substance: FENTANYL
     Dosage: 200 UG, 3 TO 4 TIMES A DAY
     Route: 062
  10. KETOPROFEN [Suspect]
     Active Substance: KETOPROFEN
     Indication: Pain
     Dosage: 200 MG, QD
     Route: 065
  11. KETOPROFEN [Suspect]
     Active Substance: KETOPROFEN
     Dosage: 100 MG, BID
     Route: 065
     Dates: start: 201603
  12. DOCETAXEL [Suspect]
     Active Substance: DOCETAXEL
     Indication: Prostate cancer
     Dosage: 50 MG/M2 (8 ADMINISTRATIONS)
     Route: 065
  13. DOCETAXEL [Suspect]
     Active Substance: DOCETAXEL
     Indication: Hormone-refractory prostate cancer
     Dosage: UNK
     Route: 065
  14. DENOSUMAB [Suspect]
     Active Substance: DENOSUMAB
     Indication: Prostate cancer
     Dosage: 120 MG (EVERY 28 DAYS)
     Route: 058
     Dates: start: 201603
  15. GABAPENTIN [Suspect]
     Active Substance: GABAPENTIN
     Indication: Pain
     Dosage: 0.3 G, TID
     Route: 065
     Dates: start: 201603, end: 2016
  16. GABAPENTIN [Suspect]
     Active Substance: GABAPENTIN
     Dosage: 150 MG, QD
     Route: 065
  17. GABAPENTIN [Suspect]
     Active Substance: GABAPENTIN
     Dosage: 900 MG
     Route: 065
  18. BICALUTAMIDE [Suspect]
     Active Substance: BICALUTAMIDE
     Indication: Prostate cancer
     Dosage: 50 MG, QD
     Route: 065
     Dates: start: 201603
  19. MORPHINE SULFATE [Suspect]
     Active Substance: MORPHINE SULFATE
     Indication: Cancer pain
     Dosage: 0.02 G, QID (FAST-RELEASE)
     Route: 048
     Dates: start: 201603
  20. MORPHINE SULFATE [Suspect]
     Active Substance: MORPHINE SULFATE
     Indication: Pain
     Dosage: 20 MG
     Route: 048
     Dates: start: 201603
  21. ACETAMINOPHEN\TRAMADOL [Suspect]
     Active Substance: ACETAMINOPHEN\TRAMADOL
     Indication: Product used for unknown indication
     Dosage: 1 DF, QID (1 DOSAGE FORM TRAMADOL HYDROCHLORIDE/ PARACETAMOL)
     Route: 065
  22. TRAMADOL HYDROCHLORIDE [Suspect]
     Active Substance: TRAMADOL HYDROCHLORIDE
     Indication: Pain
     Dosage: 37.5 MG (37.5 MG, ADHOC UPTO 4 TIMES DAILY)
     Route: 065
  23. LEUPROLIDE ACETATE [Suspect]
     Active Substance: LEUPROLIDE ACETATE
     Indication: Prostate cancer
     Dosage: UNK (Q3MO)
     Route: 065
  24. LEUPROLIDE ACETATE [Suspect]
     Active Substance: LEUPROLIDE ACETATE
     Indication: Hormone therapy
     Dosage: UNK, EVERY SIX MONTHS
     Route: 065
  25. VITAMIN D3 [Concomitant]
     Active Substance: CHOLECALCIFEROL
     Indication: Product used for unknown indication
     Dosage: 4000 IU, QD
     Route: 005
     Dates: start: 201603
  26. DEXKETOPROFEN [Concomitant]
     Active Substance: DEXKETOPROFEN
     Indication: Product used for unknown indication
     Dosage: 1 DF, TID
     Route: 065
  27. IRON [Concomitant]
     Active Substance: IRON
     Indication: Product used for unknown indication
     Dosage: UNK
     Route: 065
  28. IRON [Concomitant]
     Active Substance: IRON
     Dosage: UNK
     Route: 065
  29. TAPENTADOL HYDROCHLORIDE [Concomitant]
     Active Substance: TAPENTADOL HYDROCHLORIDE
     Indication: Polyneuropathy
     Dosage: 100 MG, QD
     Route: 065
  30. TAPENTADOL HYDROCHLORIDE [Concomitant]
     Active Substance: TAPENTADOL HYDROCHLORIDE
     Dosage: 75 MG
     Route: 065
  31. TAPENTADOL HYDROCHLORIDE [Concomitant]
     Active Substance: TAPENTADOL HYDROCHLORIDE
     Dosage: 150 MG, QD
     Route: 065
  32. TAPENTADOL HYDROCHLORIDE [Concomitant]
     Active Substance: TAPENTADOL HYDROCHLORIDE
     Dosage: 0.1 MG, QD (0.05 G, 2X PER DAY (SLOW-RELEASE)
     Route: 065
  33. PREGABALIN [Concomitant]
     Active Substance: PREGABALIN
     Indication: Polyneuropathy
     Dosage: 0.15 G, QD
     Route: 065
  34. PREGABALIN [Concomitant]
     Active Substance: PREGABALIN
     Dosage: 0.15 G, BID
     Route: 065
  35. ABIRATERONE ACETATE [Concomitant]
     Active Substance: ABIRATERONE ACETATE
     Indication: Product used for unknown indication
     Dosage: UNK
     Route: 065
  36. METAMIZOLE SODIUM [Concomitant]
     Active Substance: METAMIZOLE SODIUM
     Indication: Product used for unknown indication
     Dosage: 2 DF, TID (UP TO 4 TIMES PER DAY)
     Route: 065
  37. NIMESULIDE [Concomitant]
     Active Substance: NIMESULIDE
     Indication: Product used for unknown indication
     Dosage: UNK UNK, BID (1-0-1)
     Route: 065

REACTIONS (21)
  - Chronic kidney disease [Fatal]
  - Confusional state [Fatal]
  - Constipation [Fatal]
  - Decreased appetite [Fatal]
  - Drug ineffective [Fatal]
  - Quality of life decreased [Fatal]
  - Allodynia [Fatal]
  - Dermatitis allergic [Fatal]
  - Polyneuropathy [Fatal]
  - Polyneuropathy in malignant disease [Unknown]
  - Drug dependence [Recovered/Resolved]
  - Metastases to bone [Unknown]
  - Neuropathy peripheral [Not Recovered/Not Resolved]
  - Metastases to lung [Unknown]
  - Malignant neoplasm progression [Unknown]
  - Prostate cancer [Unknown]
  - Toxicity to various agents [Recovered/Resolved]
  - Anaemia [Unknown]
  - Hyperaesthesia [Recovered/Resolved]
  - Product use in unapproved indication [Unknown]
  - Pain [Not Recovered/Not Resolved]

NARRATIVE: CASE EVENT DATE: 20160101
